FAERS Safety Report 5502278-X (Version None)
Quarter: 2007Q4

REPORT INFORMATION
  Report Type: 
  Country: None (occurrence: None)
  Receive Date: 20071030
  Receipt Date: 20071019
  Transmission Date: 20080405
  Serious: Yes (Hospitalization, Other)
  Sender: FDA-Public Use
  Company Number: HQWYE467727JUL04

PATIENT
  Sex: Female
  Weight: 96.25 kg

DRUGS (1)
  1. PREMPRO [Suspect]
     Indication: HORMONE REPLACEMENT THERAPY
     Dosage: UNKNOWN
     Route: 048
     Dates: start: 19950101, end: 20001101

REACTIONS (3)
  - CEREBROVASCULAR ACCIDENT [None]
  - DEAFNESS [None]
  - INTRACRANIAL ANEURYSM [None]
